FAERS Safety Report 4362203-4 (Version None)
Quarter: 2004Q2

REPORT INFORMATION
  Report Type: 
  Country: None (occurrence: None)
  Receive Date: 20040521
  Receipt Date: 20040517
  Transmission Date: 20050107
  Serious: Yes (Hospitalization)
  Sender: FDA-Public Use
  Company Number: 200415170GDDC

PATIENT
  Sex: Male

DRUGS (2)
  1. LANTUS [Suspect]
     Dates: start: 20031001
  2. OPTIPEN (INSULIN PUMP) [Suspect]
     Dates: start: 20031001

REACTIONS (5)
  - CEREBROVASCULAR ACCIDENT [None]
  - CONFUSIONAL STATE [None]
  - MEDICAL DEVICE COMPLICATION [None]
  - MEDICATION ERROR [None]
  - PHARMACEUTICAL PRODUCT COMPLAINT [None]
